FAERS Safety Report 9802756 (Version 1)
Quarter: 2014Q1

REPORT INFORMATION
  Report Type: Report from Study
  Country: US (occurrence: US)
  Receive Date: 20140108
  Receipt Date: 20140108
  Transmission Date: 20141002
  Serious: Yes (Death)
  Sender: FDA-Public Use
  Company Number: US-ROCHE-1330564

PATIENT
  Sex: Female
  Weight: 61.29 kg

DRUGS (1)
  1. AVASTIN [Suspect]
     Indication: BRAIN NEOPLASM
     Dosage: CALCULATED DOSE WAS 612 MG.  FREQUENCY: DAY 1, 15.  EVERY 28 DAYS.
     Route: 042
     Dates: start: 20110518

REACTIONS (1)
  - Death [Fatal]
